APPROVED DRUG PRODUCT: DOXYCYCLINE HYCLATE
Active Ingredient: DOXYCYCLINE HYCLATE
Strength: EQ 100MG BASE
Dosage Form/Route: TABLET;ORAL
Application: A062432 | Product #001
Applicant: MYLAN PHARMACEUTICALS INC
Approved: Feb 15, 1983 | RLD: No | RS: No | Type: DISCN